FAERS Safety Report 18822297 (Version 1)
Quarter: 2021Q1

REPORT INFORMATION
  Report Type: Spontaneous
  Country: US (occurrence: US)
  Receive Date: 20210201
  Receipt Date: 20210201
  Transmission Date: 20210419
  Serious: No
  Sender: FDA-Public Use
  Company Number: None

PATIENT
  Age: 63 Year
  Sex: Male
  Weight: 76 kg

DRUGS (1)
  1. DARATUMUMAB (DARATUMUMAB 20MG/ML INJ,SOLN) [Suspect]
     Active Substance: DARATUMUMAB
     Indication: PLASMA CELL MYELOMA
     Route: 042
     Dates: start: 20200406, end: 20200406

REACTIONS (17)
  - Urticaria [None]
  - Chest pain [None]
  - Pallor [None]
  - Mental status changes [None]
  - Throat irritation [None]
  - Restlessness [None]
  - Agitation [None]
  - Presyncope [None]
  - Vomiting [None]
  - Cough [None]
  - Tachypnoea [None]
  - Pruritus [None]
  - Wheezing [None]
  - Tachycardia [None]
  - Sneezing [None]
  - Throat tightness [None]
  - Nausea [None]

NARRATIVE: CASE EVENT DATE: 20200406
